FAERS Safety Report 25473481 (Version 1)
Quarter: 2025Q2

REPORT INFORMATION
  Report Type: Spontaneous
  Country: US (occurrence: None)
  Receive Date: 20250624
  Receipt Date: 20250624
  Transmission Date: 20250716
  Serious: Yes (Hospitalization)
  Sender: FDA-CTU
  Company Number: None

PATIENT
  Age: 71 Year
  Sex: Female
  Weight: 54.2 kg

DRUGS (1)
  1. PONATINIB [Suspect]
     Active Substance: PONATINIB
     Dates: end: 20250606

REACTIONS (4)
  - Cerebral artery stenosis [None]
  - Hemiparesis [None]
  - Thalamic infarction [None]
  - Therapy cessation [None]

NARRATIVE: CASE EVENT DATE: 20250606
